FAERS Safety Report 14173761 (Version 5)
Quarter: 2019Q3

REPORT INFORMATION
  Report Type: Report from Study
  Country: DE (occurrence: DE)
  Receive Date: 20171109
  Receipt Date: 20190802
  Transmission Date: 20191004
  Serious: Yes (Other)
  Sender: FDA-Public Use
  Company Number: PHHY2017DE163125

PATIENT
  Age: 72 Year
  Sex: Female
  Weight: 83 kg

DRUGS (12)
  1. MAGNETRANS [Concomitant]
     Indication: PROPHYLAXIS
     Dosage: 375 MG, QD
     Route: 048
     Dates: start: 19990101
  2. TRULICITY [Concomitant]
     Active Substance: DULAGLUTIDE
     Indication: DIABETES MELLITUS
     Dosage: 1.5 MG, QD
     Route: 058
     Dates: start: 19990101
  3. CLONIDIN RATIOPHARM [Concomitant]
     Active Substance: CLONIDINE HYDROCHLORIDE
     Indication: HYPERTENSION
     Dosage: 150 UG, BID
     Route: 048
     Dates: start: 19990101
  4. APIDRA [Concomitant]
     Active Substance: INSULIN GLULISINE
     Indication: DIABETES MELLITUS
     Dosage: 100 ML, TID
     Route: 058
     Dates: start: 19990101
  5. BISOPROLOL RATIOPHARM [Concomitant]
     Active Substance: BISOPROLOL
     Indication: HYPERTENSION
     Dosage: 5 MG, BID
     Route: 048
     Dates: start: 19990101
  6. VOTRIENT [Suspect]
     Active Substance: PAZOPANIB HYDROCHLORIDE
     Dosage: 400 MG, QD
     Route: 048
     Dates: start: 20170626, end: 20170912
  7. DEKRISTOL [Concomitant]
     Active Substance: CHOLECALCIFEROL
     Indication: PROPHYLAXIS
     Dosage: 400 OT, QD
     Route: 058
     Dates: start: 19990101
  8. VOTRIENT [Suspect]
     Active Substance: PAZOPANIB HYDROCHLORIDE
     Indication: METASTATIC RENAL CELL CARCINOMA
     Dosage: 800 MG, QD
     Route: 048
     Dates: start: 20170505, end: 20170601
  9. LEVEMIR [Concomitant]
     Active Substance: INSULIN DETEMIR
     Indication: DIABETES MELLITUS
     Dosage: 20 MG, QD
     Route: 048
     Dates: start: 19990101
  10. AMLODIPIN-RATIOPHARM [Concomitant]
     Active Substance: AMLODIPINE MALEATE
     Indication: HYPERTENSION
     Dosage: 10 MG, BID
     Route: 048
     Dates: start: 19990101
  11. ATORVASTATIN RATIOPHARM [Concomitant]
     Active Substance: ATORVASTATIN
     Indication: PROPHYLAXIS
     Dosage: 20 MG, QD
     Route: 048
     Dates: start: 19990101
  12. CLONIDIN RATIOPHARM [Concomitant]
     Active Substance: CLONIDINE HYDROCHLORIDE
     Dosage: 300 UG, BID
     Route: 048
     Dates: start: 19990101

REACTIONS (2)
  - Cholestasis [Not Recovered/Not Resolved]
  - Transaminases increased [Recovered/Resolved]

NARRATIVE: CASE EVENT DATE: 20170602
